FAERS Safety Report 5704551-9 (Version None)
Quarter: 2008Q2

REPORT INFORMATION
  Report Type: 
  Country: None (occurrence: None)
  Receive Date: 20080414
  Receipt Date: 20080401
  Transmission Date: 20081010
  Serious: Yes (Death, Life-Threatening, Hospitalization)
  Sender: FDA-Public Use
  Company Number: IE-ROCHE-540866

PATIENT
  Sex: Male
  Weight: 92 kg

DRUGS (5)
  1. XELODA [Suspect]
     Indication: GASTRIC CANCER
     Dosage: THE PATIENT RECEIVED 2 CYCLES. DOSAGE: ^2000MG/M2 X2/DAY^.
     Route: 048
     Dates: start: 20061205
  2. XELODA [Suspect]
     Dosage: DOSAGE: ^1250MG/M2/DAY (1500MG + 1000MG)^.
     Route: 048
     Dates: start: 20070122, end: 20070309
  3. GEMCITABINE [Concomitant]
     Dosage: THE PATIENT RECEIVED 2 CYCLES. PREMATURLY INTERRUPTED AND SWITCHED TO CAPECITABINE.
  4. TRENTAL [Concomitant]
     Indication: GASTROENTERITIS RADIATION
     Dates: start: 20070701, end: 20070801
  5. VITAMIN E [Concomitant]
     Indication: GASTROENTERITIS RADIATION
     Dates: start: 20070701, end: 20070801

REACTIONS (5)
  - ASCITES [None]
  - CRYPTOGENIC CIRRHOSIS [None]
  - ENTERITIS [None]
  - GASTRITIS [None]
  - GASTROINTESTINAL HAEMORRHAGE [None]
